FAERS Safety Report 9519402 (Version 1)
Quarter: 2013Q3

REPORT INFORMATION
  Report Type: Spontaneous
  Country: US (occurrence: None)
  Receive Date: 20130911
  Receipt Date: 20130911
  Transmission Date: 20140515
  Serious: No
  Sender: FDA-Public Use
  Company Number: None

PATIENT
  Age: 80 Year
  Sex: Male

DRUGS (1)
  1. HUMIRA [Suspect]
     Indication: CROHN^S DISEASE
     Dosage: 40MG QOW SUBCUTANEOUSLY
     Route: 058
     Dates: start: 20130504, end: 20130909

REACTIONS (5)
  - Abdominal distension [None]
  - Local swelling [None]
  - Pain [None]
  - Headache [None]
  - Local swelling [None]
